FAERS Safety Report 5051361-4 (Version None)
Quarter: 2006Q3

REPORT INFORMATION
  Report Type: 
  Country: None (occurrence: None)
  Receive Date: 20060714
  Receipt Date: 20060427
  Transmission Date: 20061208
  Serious: Yes (Hospitalization, Other)
  Sender: FDA-Public Use
  Company Number: PHBS2006BR08614

PATIENT
  Age: 40 Year
  Sex: Female

DRUGS (4)
  1. XOLAIR [Suspect]
     Indication: ASTHMA
     Dosage: 150 MG, ONCE/SINGLE
     Route: 058
     Dates: start: 20060528
  2. PREDNISOLONE [Concomitant]
     Dosage: 600MG/DAY
  3. SALBUTAMOL [Concomitant]
  4. FORASEQ [Suspect]
     Indication: ASTHMA
     Dosage: 3 DF/DAY

REACTIONS (6)
  - ASTHMA [None]
  - CONDITION AGGRAVATED [None]
  - DYSPNOEA [None]
  - HYPERAEMIA [None]
  - LARYNGEAL OEDEMA [None]
  - PRURITUS [None]
